FAERS Safety Report 18337225 (Version 1)
Quarter: 2020Q4

REPORT INFORMATION
  Report Type: Spontaneous
  Country: US (occurrence: US)
  Receive Date: 20201001
  Receipt Date: 20201001
  Transmission Date: 20210113
  Serious: No
  Sender: FDA-Public Use
  Company Number: US-LUPIN PHARMACEUTICALS INC.-2020-00504

PATIENT
  Age: 62 Year
  Sex: Female
  Weight: 67.12 kg

DRUGS (1)
  1. CEPHALEXIN FOR ORAL SUSPENSION USP 250 MG/5 ML [Suspect]
     Active Substance: CEPHALEXIN
     Indication: URINARY TRACT INFECTION
     Dosage: UNK (250 MG/5ML)
     Route: 048
     Dates: start: 20200122

REACTIONS (1)
  - Diarrhoea [Not Recovered/Not Resolved]

NARRATIVE: CASE EVENT DATE: 20200125
